FAERS Safety Report 16486070 (Version 1)
Quarter: 2019Q2

REPORT INFORMATION
  Report Type: Spontaneous
  Country: US (occurrence: US)
  Receive Date: 20190627
  Receipt Date: 20190627
  Transmission Date: 20190711
  Serious: No
  Sender: FDA-Public Use
  Company Number: US-BAUSCH-BL-2019-017412

PATIENT
  Age: 66 Year
  Sex: Female
  Weight: 59.02 kg

DRUGS (1)
  1. LUMIFY [Suspect]
     Active Substance: BRIMONIDINE TARTRATE
     Indication: OCULAR HYPERAEMIA
     Dosage: ONCE TO TWICE DAILY (AS NEEDED)
     Route: 047
     Dates: end: 201906

REACTIONS (3)
  - Ocular hyperaemia [Not Recovered/Not Resolved]
  - Therapeutic product effect incomplete [Unknown]
  - Condition aggravated [Not Recovered/Not Resolved]
